FAERS Safety Report 8048108-6 (Version None)
Quarter: 2012Q1

REPORT INFORMATION
  Report Type: 
  Country: None (occurrence: None)
  Receive Date: 20120112
  Receipt Date: 20120112
  Transmission Date: 20120608
  Serious: Yes (Hospitalization)
  Sender: FDA-Public Use
  Company Number: None

PATIENT
  Age: 74 Year
  Sex: Female
  Weight: 72.5 kg

DRUGS (1)
  1. ISOVUE-370 [Suspect]
     Indication: COMPUTERISED TOMOGRAM
     Dosage: 200ML X1 IV
     Route: 042
     Dates: start: 20120109

REACTIONS (7)
  - LETHARGY [None]
  - PALLOR [None]
  - UNRESPONSIVE TO STIMULI [None]
  - ASTHENIA [None]
  - CAROTID ARTERY OCCLUSION [None]
  - SYNCOPE [None]
  - COMMUNICATION DISORDER [None]
